FAERS Safety Report 23722535 (Version 1)
Quarter: 2024Q2

REPORT INFORMATION
  Report Type: Spontaneous
  Country: IT (occurrence: IT)
  Receive Date: 20240409
  Receipt Date: 20240409
  Transmission Date: 20240716
  Serious: Yes (Hospitalization)
  Sender: FDA-Public Use
  Company Number: None

PATIENT
  Age: 88 Year
  Sex: Male

DRUGS (1)
  1. TICLOPIDINE [Suspect]
     Active Substance: TICLOPIDINE
     Indication: Thrombosis prophylaxis
     Dosage: TICLOPIDINA, 250 MG DAILY
     Route: 048

REACTIONS (2)
  - Melaena [Unknown]
  - Rectal haemorrhage [Unknown]

NARRATIVE: CASE EVENT DATE: 20240116
